FAERS Safety Report 20682950 (Version 4)
Quarter: 2022Q2

REPORT INFORMATION
  Report Type: Spontaneous
  Country: US (occurrence: US)
  Receive Date: 20220407
  Receipt Date: 20220517
  Transmission Date: 20220720
  Serious: No
  Sender: FDA-Public Use
  Company Number: US-ORGANON-O2204USA000320

PATIENT
  Age: 21 Year
  Sex: Female
  Weight: 92.517 kg

DRUGS (1)
  1. NEXPLANON [Suspect]
     Active Substance: ETONOGESTREL
     Indication: Contraception
     Dosage: 1 IMPLANT OF 68 MG IN LEFT ARM
     Route: 059
     Dates: start: 20210429, end: 20220330

REACTIONS (4)
  - Medical device site dryness [Recovering/Resolving]
  - Implant site exfoliation [Recovered/Resolved]
  - Device breakage [Recovered/Resolved]
  - Implant site pruritus [Recovered/Resolved]

NARRATIVE: CASE EVENT DATE: 20220201
